FAERS Safety Report 16999675 (Version 1)
Quarter: 2019Q4

REPORT INFORMATION
  Report Type: Spontaneous
  Country: US (occurrence: US)
  Receive Date: 20191106
  Receipt Date: 20191106
  Transmission Date: 20200122
  Serious: Yes (Hospitalization)
  Sender: FDA-Public Use
  Company Number: US-MYLANLABS-2019M1105262

PATIENT
  Age: 10 Year
  Sex: Male

DRUGS (10)
  1. SALBUTAMOL [Suspect]
     Active Substance: ALBUTEROL
     Indication: STATUS ASTHMATICUS
     Dosage: 20 MG/HR; CONTINUOUS NEBULIZATION
     Route: 050
  2. TERBUTALINE [Suspect]
     Active Substance: TERBUTALINE
     Indication: STATUS ASTHMATICUS
     Dosage: 4 UG/KG/MIN
     Route: 065
  3. MAGNESIUM [Concomitant]
     Active Substance: MAGNESIUM
     Indication: BRONCHOSPASM
     Dosage: UNK
     Route: 065
  4. THEOPHYLLINE [Concomitant]
     Active Substance: THEOPHYLLINE ANHYDROUS
     Indication: BRONCHOSPASM
     Dosage: 1.6 MG/KG/HR
     Route: 042
  5. IPRATROPIUM BROMIDE. [Concomitant]
     Active Substance: IPRATROPIUM BROMIDE
     Indication: STATUS ASTHMATICUS
     Dosage: NEBULIZATION
     Route: 050
  6. KETAMINE [Concomitant]
     Active Substance: KETAMINE
     Indication: BRONCHOSPASM
     Dosage: UNK
     Route: 065
  7. METHYLPREDNISOLONE. [Concomitant]
     Active Substance: METHYLPREDNISOLONE
     Indication: BRONCHOSPASM
     Route: 042
  8. IPRATROPIUM BROMIDE. [Concomitant]
     Active Substance: IPRATROPIUM BROMIDE
     Indication: BRONCHOSPASM
  9. SALBUTAMOL [Suspect]
     Active Substance: ALBUTEROL
     Indication: BRONCHOSPASM
  10. TERBUTALINE [Suspect]
     Active Substance: TERBUTALINE
     Indication: BRONCHOSPASM

REACTIONS (3)
  - Wolff-Parkinson-White syndrome [Recovering/Resolving]
  - Unmasking of previously unidentified disease [Recovering/Resolving]
  - Ventricular tachycardia [Recovering/Resolving]
